FAERS Safety Report 22535855 (Version 1)
Quarter: 2023Q2

REPORT INFORMATION
  Report Type: Spontaneous
  Country: US (occurrence: US)
  Receive Date: 20230608
  Receipt Date: 20230608
  Transmission Date: 20230722
  Serious: No
  Sender: FDA-Public Use
  Company Number: US-SA-SAC20230607000457

PATIENT
  Age: 17 Year
  Sex: Female
  Weight: 78.19 kg

DRUGS (1)
  1. DUPIXENT [Suspect]
     Active Substance: DUPILUMAB
     Indication: Dermatitis atopic
     Dosage: 300MG, QOW
     Route: 058
     Dates: start: 20230426

REACTIONS (3)
  - Skin depigmentation [Unknown]
  - Condition aggravated [Unknown]
  - Skin discolouration [Unknown]
